FAERS Safety Report 23954888 (Version 1)
Quarter: 2024Q2

REPORT INFORMATION
  Report Type: Spontaneous
  Country: US (occurrence: None)
  Receive Date: 20240610
  Receipt Date: 20240610
  Transmission Date: 20240716
  Serious: No
  Sender: FDA-Public Use
  Company Number: 2024A128593

PATIENT
  Age: 26 Year
  Sex: Female

DRUGS (4)
  1. SYMBICORT [Suspect]
     Active Substance: BUDESONIDE\FORMOTEROL FUMARATE DIHYDRATE
     Dosage: UNKNOWN UNKNOWN
     Route: 055
  2. DUPIXENT [Suspect]
     Active Substance: DUPILUMAB
     Indication: Asthma
     Route: 058
  3. BOTOX [Suspect]
     Active Substance: ONABOTULINUMTOXINA
  4. TRIAMCINOLONE [Concomitant]
     Active Substance: TRIAMCINOLONE

REACTIONS (12)
  - Nasal dryness [Unknown]
  - Epistaxis [Unknown]
  - Dyspnoea [Unknown]
  - Depression [Unknown]
  - Rash [Unknown]
  - Brain fog [Unknown]
  - Chest discomfort [Unknown]
  - Dry eye [Unknown]
  - Eye disorder [Unknown]
  - Thermal burn [Unknown]
  - Pain [Unknown]
  - Skin exfoliation [Unknown]
